FAERS Safety Report 23218774 (Version 3)
Quarter: 2024Q4

REPORT INFORMATION
  Report Type: Other
  Country: US (occurrence: US)
  Receive Date: 20231122
  Receipt Date: 20241104
  Transmission Date: 20250115
  Serious: No
  Sender: TRAVERE THERAPEUTICS
  Company Number: US-TRAVERE-2023TVT00735

PATIENT
  Age: 68 Year
  Sex: Female

DRUGS (1)
  1. FILSPARI [Suspect]
     Active Substance: SPARSENTAN
     Indication: IgA nephropathy
     Dosage: 400 MG
     Route: 048

REACTIONS (6)
  - Large intestine polyp [Recovered/Resolved]
  - Fatigue [Unknown]
  - Weight increased [Unknown]
  - Blood potassium increased [Unknown]
  - Blood cholesterol increased [Unknown]
  - Low density lipoprotein increased [Unknown]
